FAERS Safety Report 9696771 (Version 2)
Quarter: 2013Q4

REPORT INFORMATION
  Report Type: Spontaneous
  Country: US (occurrence: US)
  Receive Date: 20131119
  Receipt Date: 20131119
  Transmission Date: 20140711
  Serious: No
  Sender: FDA-Public Use
  Company Number: US-GILEAD-2007-0014565

PATIENT
  Age: 72 Year
  Sex: Female
  Weight: 48.99 kg

DRUGS (17)
  1. ASPIRIN [Concomitant]
     Route: 048
  2. TYLENOL [Concomitant]
     Route: 048
  3. PRILOSEC [Concomitant]
     Route: 048
  4. PROZAC [Concomitant]
     Route: 048
  5. VITAMIN B12 [Concomitant]
     Route: 048
  6. ZETIA [Concomitant]
     Route: 048
  7. OXYGEN [Concomitant]
  8. LETAIRIS [Suspect]
     Indication: PULMONARY ARTERIAL HYPERTENSION
     Route: 048
     Dates: start: 20071201, end: 20071207
  9. SODIUM CHLORIDE [Concomitant]
     Dosage: CONTINUOUS
     Route: 042
  10. REMODULIN [Concomitant]
     Dosage: CONTINIUOUS
     Route: 042
  11. LASIX [Concomitant]
     Route: 048
  12. REVATIO [Concomitant]
     Route: 048
  13. POTASSIUM CHLORIDE [Concomitant]
     Route: 048
  14. SYNTHROID [Concomitant]
     Route: 048
  15. CARBAMAZEPINE [Concomitant]
     Route: 048
  16. CALTRATE + D [Concomitant]
     Route: 048
  17. THIAMINE [Concomitant]
     Route: 048

REACTIONS (2)
  - Nasal discomfort [Unknown]
  - Nasal obstruction [Unknown]
